FAERS Safety Report 5892131-4 (Version None)
Quarter: 2008Q3

REPORT INFORMATION
  Report Type: 
  Country: None (occurrence: None)
  Receive Date: 20080908
  Receipt Date: 20080519
  Transmission Date: 20090109
  Serious: No
  Sender: FDA-Public Use
  Company Number: 002#2#2008-00442

PATIENT
  Age: 39 Year
  Sex: Female

DRUGS (3)
  1. NEUPRO [Suspect]
     Indication: PARKINSON'S DISEASE
     Dosage: 2MG/24H, 1 IN 1 D, TRANSDERMAL
     Route: 062
     Dates: start: 20080301
  2. SINEMET [Concomitant]
  3. MIRAPEX [Concomitant]

REACTIONS (2)
  - ABASIA [None]
  - MOVEMENT DISORDER [None]
